FAERS Safety Report 6771699-X (Version None)
Quarter: 2010Q2

REPORT INFORMATION
  Report Type: 
  Country: None (occurrence: None)
  Receive Date: 20100616
  Receipt Date: 20100120
  Transmission Date: 20101027
  Serious: No
  Sender: FDA-Public Use
  Company Number: US-ASTRAZENECA-2010SE02927

PATIENT
  Sex: Female

DRUGS (5)
  1. ATACAND [Suspect]
     Route: 048
  2. NEXIUM [Interacting]
     Route: 048
  3. CRESTOR [Interacting]
     Route: 048
  4. METFORMIN HCL [Interacting]
  5. METHOZOLE [Interacting]

REACTIONS (2)
  - POTENTIATING DRUG INTERACTION [None]
  - RENAL FAILURE [None]
